FAERS Safety Report 5220451-5 (Version None)
Quarter: 2007Q1

REPORT INFORMATION
  Report Type: 
  Country: None (occurrence: None)
  Receive Date: 20061201
  Receipt Date: 20060710
  Transmission Date: 20070707
  Serious: No
  Sender: FDA-Public Use
  Company Number: 2006PV017262

PATIENT
  Age: 67 Year
  Sex: Female
  Weight: 88.905 kg

DRUGS (3)
  1. BYETTA [Suspect]
     Indication: BLOOD GLUCOSE ABNORMAL
     Dosage: SEE IMAGE
     Route: 058
     Dates: start: 20060501, end: 20060705
  2. BYETTA [Suspect]
     Indication: BLOOD GLUCOSE ABNORMAL
     Dosage: SEE IMAGE
     Route: 058
     Dates: start: 20060706
  3. THYROID TAB [Concomitant]

REACTIONS (5)
  - ASTHENIA [None]
  - DIZZINESS [None]
  - DRY MOUTH [None]
  - FATIGUE [None]
  - PALPITATIONS [None]
